FAERS Safety Report 14937631 (Version 1)
Quarter: 2018Q2

REPORT INFORMATION
  Report Type: Spontaneous
  Country: DE (occurrence: DE)
  Receive Date: 20180525
  Receipt Date: 20180525
  Transmission Date: 20180711
  Serious: Yes (Other)
  Sender: FDA-Public Use
  Company Number: PHHY2018DE006062

PATIENT
  Age: 22 Year
  Sex: Male
  Weight: 64 kg

DRUGS (13)
  1. RALTEGRAVIR. [Concomitant]
     Active Substance: RALTEGRAVIR
     Indication: HIV INFECTION
     Dosage: 800 MG, UNK
     Route: 065
     Dates: start: 20130424
  2. EMTRICITABINE [Concomitant]
     Active Substance: EMTRICITABINE
     Dosage: 200 MG, UNK
     Route: 065
     Dates: start: 20130806
  3. TENOFOVIR [Concomitant]
     Active Substance: TENOFOVIR
     Dosage: 300 MG, UNK
     Route: 065
     Dates: start: 20130806
  4. RIBAVIRIN. [Suspect]
     Active Substance: RIBAVIRIN
     Indication: HEPATITIS C
     Dosage: 1200 MG, UNK
     Route: 048
     Dates: start: 20130514
  5. EMTRICITABINE [Concomitant]
     Active Substance: EMTRICITABINE
     Indication: HIV INFECTION
     Dosage: 200 MG, UNK
     Route: 065
     Dates: start: 20130424
  6. EMTRICITABINE [Concomitant]
     Active Substance: EMTRICITABINE
     Dosage: 200 MG, UNK
     Route: 065
     Dates: start: 20130513
  7. PEGINTERFERON ALFA-2A. [Suspect]
     Active Substance: PEGINTERFERON ALFA-2A
     Indication: HEPATITIS C
     Dosage: 180 UG, UNK
     Route: 058
     Dates: start: 20130514
  8. RALTEGRAVIR. [Concomitant]
     Active Substance: RALTEGRAVIR
     Dosage: 800 MG, UNK
     Route: 065
     Dates: start: 20130513
  9. IBUPROFEN. [Concomitant]
     Active Substance: IBUPROFEN
     Indication: PRODUCT USED FOR UNKNOWN INDICATION
     Dosage: 800 MG, UNK
     Route: 065
     Dates: start: 20130514
  10. RALTEGRAVIR. [Concomitant]
     Active Substance: RALTEGRAVIR
     Dosage: 800 MG, UNK
     Route: 065
     Dates: start: 20130806
  11. TENOFOVIR [Concomitant]
     Active Substance: TENOFOVIR
     Indication: HIV INFECTION
     Dosage: 300 MG, UNK
     Route: 065
     Dates: start: 20130424
  12. TELAPREVIR [Suspect]
     Active Substance: TELAPREVIR
     Indication: HEPATITIS C
     Dosage: 2250 MG, UNK
     Route: 048
     Dates: start: 20130514
  13. TENOFOVIR [Concomitant]
     Active Substance: TENOFOVIR
     Dosage: 300 MG, UNK
     Route: 065
     Dates: start: 20130513

REACTIONS (1)
  - Thrombocytopenia [Not Recovered/Not Resolved]

NARRATIVE: CASE EVENT DATE: 20130625
